FAERS Safety Report 15798889 (Version 1)
Quarter: 2019Q1

REPORT INFORMATION
  Report Type: Report from Study
  Country: IT (occurrence: IT)
  Receive Date: 20190108
  Receipt Date: 20190108
  Transmission Date: 20190417
  Serious: Yes (Other)
  Sender: FDA-Public Use
  Company Number: IT-MYLANLABS-2019M1000298

PATIENT
  Age: 73 Year
  Sex: Male

DRUGS (6)
  1. OMNIC [Concomitant]
     Active Substance: TAMSULOSIN HYDROCHLORIDE
     Dosage: UNK
  2. PANTORC [Concomitant]
     Active Substance: PANTOPRAZOLE SODIUM
     Dosage: UNK
  3. VALPRESSION [Suspect]
     Active Substance: VALSARTAN
     Indication: HYPERTENSION
     Dosage: 1 DOSAGE FORM, QD
     Route: 048
  4. CARVEDILOL. [Suspect]
     Active Substance: CARVEDILOL
     Indication: HYPERTENSION
     Dosage: 1 DOSAGE FORM, QD
     Route: 048
  5. TORVAST [Concomitant]
     Active Substance: ATORVASTATIN
     Dosage: UNK
  6. THEO-DUR [Concomitant]
     Active Substance: THEOPHYLLINE ANHYDROUS
     Dosage: UNK

REACTIONS (3)
  - Drug ineffective [Recovering/Resolving]
  - Blood pressure increased [Recovering/Resolving]
  - Headache [Recovering/Resolving]

NARRATIVE: CASE EVENT DATE: 20180514
